FAERS Safety Report 11605237 (Version 2)
Quarter: 2015Q4

REPORT INFORMATION
  Report Type: Spontaneous
  Country: US (occurrence: US)
  Receive Date: 20151007
  Receipt Date: 20151020
  Transmission Date: 20160304
  Serious: Yes (Hospitalization)
  Sender: FDA-Public Use
  Company Number: US-SHIRE-US201512376

PATIENT
  Age: 13 Year
  Sex: Male
  Weight: 40 kg

DRUGS (1)
  1. ELAPRASE [Suspect]
     Active Substance: IDURSULFASE
     Indication: MUCOPOLYSACCHARIDOSIS II
     Dosage: 18 MG, 1X/WEEK
     Route: 041
     Dates: start: 20150610

REACTIONS (1)
  - Respiratory tract congestion [Recovered/Resolved]

NARRATIVE: CASE EVENT DATE: 201509
